FAERS Safety Report 10343751 (Version 3)
Quarter: 2014Q4

REPORT INFORMATION
  Report Type: Spontaneous
  Country: US (occurrence: US)
  Receive Date: 20140725
  Receipt Date: 20141202
  Transmission Date: 20150528
  Serious: Yes (Hospitalization)
  Sender: FDA-Public Use
  Company Number: US-ACTELION-A-US2014-102504

PATIENT
  Age: 63 Year
  Sex: Male

DRUGS (2)
  1. VELETRI [Suspect]
     Active Substance: EPOPROSTENOL
     Indication: COR PULMONALE CHRONIC
     Dosage: 14 NG/KG, PER MIN
     Route: 042
     Dates: start: 20140214
  2. VELETRI [Suspect]
     Active Substance: EPOPROSTENOL
     Dosage: 18 NG/KG, UNK
     Route: 042
     Dates: start: 20140214

REACTIONS (5)
  - Endocarditis [Recovered/Resolved]
  - Device related sepsis [Recovered/Resolved]
  - Bacteraemia [Recovered/Resolved]
  - Staphylococcus test positive [Recovered/Resolved]
  - Cardiac disorder [Unknown]
